FAERS Safety Report 16143908 (Version 3)
Quarter: 2020Q1

REPORT INFORMATION
  Report Type: Report from Study
  Country: CA (occurrence: CA)
  Receive Date: 20190401
  Receipt Date: 20200211
  Transmission Date: 20200409
  Serious: No
  Sender: FDA-Public Use
  Company Number: CA-BIOMARINAP-CA-2019-121703

PATIENT
  Age: 23 Year
  Sex: Female
  Weight: 34.6 kg

DRUGS (17)
  1. DICLOFENAC [Concomitant]
     Active Substance: DICLOFENAC
     Indication: ARTHRALGIA
     Dates: start: 20180213
  2. DICLOFENAC [Concomitant]
     Active Substance: DICLOFENAC
     Dates: start: 20180113
  3. CALCIUM [Concomitant]
     Active Substance: CALCIUM
     Dates: start: 201704
  4. MAGNESIUM [Concomitant]
     Active Substance: MAGNESIUM
     Dates: start: 201704
  5. VIMIZIM [Suspect]
     Active Substance: ELOSULFASE ALFA
     Indication: MUCOPOLYSACCHARIDOSIS IV
     Dosage: 2 MILLIGRAM/KILOGRAM, QW
     Route: 042
     Dates: start: 20120731
  6. DICLOFENAC [Concomitant]
     Active Substance: DICLOFENAC
     Dates: start: 20180113
  7. NAPROXEN. [Concomitant]
     Active Substance: NAPROXEN
     Indication: ARTHRALGIA
     Dates: start: 20190213
  8. NAPROXEN. [Concomitant]
     Active Substance: NAPROXEN
     Dates: start: 20180213
  9. NAPROXEN. [Concomitant]
     Active Substance: NAPROXEN
     Dates: start: 20180213
  10. CALCIUM [Concomitant]
     Active Substance: CALCIUM
     Indication: SUPPLEMENTATION THERAPY
     Dates: start: 201704
  11. VITAMIN D [VITAMIN D NOS] [Concomitant]
     Active Substance: VITAMIN D NOS
     Indication: SUPPLEMENTATION THERAPY
     Dates: start: 201704
  12. OMEGA-3 FATTY ACIDS [Concomitant]
     Active Substance: OMEGA-3 FATTY ACIDS
     Indication: SUPPLEMENTATION THERAPY
     Dates: start: 201704
  13. MAGNESIUM [Concomitant]
     Active Substance: MAGNESIUM
     Indication: SUPPLEMENTATION THERAPY
     Dates: start: 201704
  14. VITAMIN D [VITAMIN D NOS] [Concomitant]
     Active Substance: VITAMIN D NOS
     Dates: start: 201704
  15. OMEGA-3 FATTY ACIDS [Concomitant]
     Active Substance: OMEGA-3 FATTY ACIDS
     Dates: start: 201704
  16. CENTRUM PRENATAL [Concomitant]
     Indication: SUPPLEMENTATION THERAPY
     Dates: start: 20170822
  17. CENTRUM PRENATAL [Concomitant]
     Dates: start: 20170822

REACTIONS (1)
  - Maternal exposure during pregnancy [Recovered/Resolved]

NARRATIVE: CASE EVENT DATE: 201901
